FAERS Safety Report 6428582-9 (Version None)
Quarter: 2009Q4

REPORT INFORMATION
  Report Type: 
  Country: None (occurrence: None)
  Receive Date: 20091104
  Receipt Date: 20091104
  Transmission Date: 20100525
  Serious: Yes (Hospitalization)
  Sender: FDA-Public Use
  Company Number: None

PATIENT
  Age: 76 Year
  Sex: Male

DRUGS (1)
  1. IMATINIB [Suspect]
     Dosage: 1600 MG EVERY DAY PO
     Route: 048
     Dates: start: 20071206, end: 20081019

REACTIONS (1)
  - PANCREATITIS [None]
